FAERS Safety Report 13793222 (Version 1)
Quarter: 2017Q3

REPORT INFORMATION
  Report Type: Spontaneous
  Country: US (occurrence: US)
  Receive Date: 20170726
  Receipt Date: 20170726
  Transmission Date: 20171127
  Serious: No
  Sender: FDA-Public Use
  Company Number: US-ASTRAZENECA-2017SE75143

PATIENT
  Sex: Female
  Weight: 71.7 kg

DRUGS (1)
  1. PULMICORT FLEXHALER [Suspect]
     Active Substance: BUDESONIDE
     Indication: SINUS DISORDER
     Dosage: 180 MCG, TWO  PUFFS TWO TIMES A DAY
     Route: 055

REACTIONS (8)
  - Discomfort [Unknown]
  - Sinus headache [Unknown]
  - Off label use [Unknown]
  - Ear discomfort [Unknown]
  - Product use in unapproved indication [Unknown]
  - Eye disorder [Unknown]
  - Drug ineffective [Unknown]
  - Intentional product misuse [Unknown]
